FAERS Safety Report 12484424 (Version 2)
Quarter: 2016Q4

REPORT INFORMATION
  Report Type: Report from Study
  Country: IL (occurrence: IL)
  Receive Date: 20160621
  Receipt Date: 20161021
  Transmission Date: 20170207
  Serious: Yes (Hospitalization, Other)
  Sender: FDA-Public Use
  Company Number: IL-NOVOPROD-495745

PATIENT
  Age: 78 Year
  Sex: Female

DRUGS (2)
  1. PREDNISONE. [Concomitant]
     Active Substance: PREDNISONE
     Indication: RHEUMATOID ARTHRITIS
     Dosage: UNK
     Route: 065
  2. VICTOZA [Suspect]
     Active Substance: LIRAGLUTIDE
     Indication: DIABETES MELLITUS
     Dosage: 1.20 MG, QD
     Route: 058
     Dates: start: 20140914

REACTIONS (4)
  - Confusional state [Unknown]
  - Feeling abnormal [Unknown]
  - Blood pressure increased [Unknown]
  - Heart rate increased [Recovered/Resolved]
